FAERS Safety Report 24831543 (Version 5)
Quarter: 2025Q2

REPORT INFORMATION
  Report Type: Spontaneous
  Country: US (occurrence: US)
  Receive Date: 20250110
  Receipt Date: 20250624
  Transmission Date: 20250716
  Serious: No
  Sender: SANOFI AVENTIS
  Company Number: US-SA-2025SA009228

PATIENT
  Age: 84 Year
  Sex: Female

DRUGS (2)
  1. DUPIXENT [Suspect]
     Active Substance: DUPILUMAB
     Indication: Eosinophilic oesophagitis
     Dosage: 300 MG, QW
     Route: 058
  2. DUPIXENT [Suspect]
     Active Substance: DUPILUMAB
     Dosage: 300 MG, QOW
     Route: 058

REACTIONS (10)
  - Epistaxis [Unknown]
  - Rhinalgia [Unknown]
  - Joint swelling [Unknown]
  - Dysphagia [Unknown]
  - Weight decreased [Unknown]
  - Fatigue [Unknown]
  - Oedema [Unknown]
  - Injection site pruritus [Unknown]
  - Injection site erythema [Unknown]
  - Product use issue [Unknown]

NARRATIVE: CASE EVENT DATE: 20250301
